FAERS Safety Report 20974017 (Version 1)
Quarter: 2022Q2

REPORT INFORMATION
  Report Type: Spontaneous
  Country: GB (occurrence: GB)
  Receive Date: 20220617
  Receipt Date: 20220617
  Transmission Date: 20220721
  Serious: Yes (Other)
  Sender: FDA-Public Use
  Company Number: GB-MHRA-MED-202206071819425190-NTJDR

PATIENT
  Age: 66 Year
  Sex: Female
  Weight: 53 kg

DRUGS (4)
  1. LEVOTHYROXINE SODIUM ANHYDROUS [Suspect]
     Active Substance: LEVOTHYROXINE SODIUM ANHYDROUS
     Indication: Adverse drug reaction
     Dosage: 62.25;
     Route: 065
     Dates: start: 20211009
  2. LEVOTHYROXINE SODIUM ANHYDROUS [Suspect]
     Active Substance: LEVOTHYROXINE SODIUM ANHYDROUS
     Indication: Autoimmune hypothyroidism
  3. LEVOTHYROXINE [Suspect]
     Active Substance: LEVOTHYROXINE
     Indication: Adverse drug reaction
     Dosage: 62.25;
     Route: 065
     Dates: start: 20211009
  4. LEVOTHYROXINE [Suspect]
     Active Substance: LEVOTHYROXINE
     Indication: Hypothyroidism

REACTIONS (1)
  - Migraine [Not Recovered/Not Resolved]

NARRATIVE: CASE EVENT DATE: 20211009
